FAERS Safety Report 12939600 (Version 1)
Quarter: 2016Q4

REPORT INFORMATION
  Report Type: Spontaneous
  Country: US (occurrence: US)
  Receive Date: 20161115
  Receipt Date: 20161115
  Transmission Date: 20170207
  Serious: Yes (Other)
  Sender: FDA-Public Use
  Company Number: US-ENDO PHARMACEUTICALS INC.-2016-006726

PATIENT
  Sex: Female

DRUGS (1)
  1. TESTIM [Suspect]
     Active Substance: TESTOSTERONE
     Indication: PRODUCT USED FOR UNKNOWN INDICATION
     Dosage: N/A
     Route: 065

REACTIONS (6)
  - Breast cancer [Unknown]
  - Sleep disorder [Unknown]
  - Hair growth abnormal [Unknown]
  - Accidental exposure to product [Unknown]
  - Hormone level abnormal [Unknown]
  - Hot flush [Unknown]
